FAERS Safety Report 5592357-3 (Version None)
Quarter: 2008Q1

REPORT INFORMATION
  Report Type: 
  Country: None (occurrence: None)
  Receive Date: 20080115
  Receipt Date: 20080107
  Transmission Date: 20080703
  Serious: Yes (Hospitalization)
  Sender: FDA-Public Use
  Company Number: DE-PFIZER INC-2006075777

PATIENT
  Sex: Male
  Weight: 76 kg

DRUGS (3)
  1. SU-011,248 [Suspect]
     Indication: METASTATIC RENAL CELL CARCINOMA
     Route: 048
     Dates: start: 20060529, end: 20060608
  2. BISOPROLOL FUMARATE [Concomitant]
  3. TILIDINE HYDROCHLORIDE [Concomitant]

REACTIONS (4)
  - CONFUSIONAL STATE [None]
  - DEHYDRATION [None]
  - PYREXIA [None]
  - THROMBOCYTOPENIA [None]
